FAERS Safety Report 9938176 (Version 2)
Quarter: 2014Q2

REPORT INFORMATION
  Report Type: Report from Study
  Country: US (occurrence: US)
  Receive Date: 20140303
  Receipt Date: 20140402
  Transmission Date: 20141212
  Serious: Yes (Hospitalization)
  Sender: FDA-Public Use
  Company Number: US-BRISTOL-MYERS SQUIBB COMPANY-20348397

PATIENT
  Age: 42 Year
  Sex: Female

DRUGS (4)
  1. ARIPIPRAZOLE [Suspect]
     Indication: BIPOLAR I DISORDER
     Route: 048
     Dates: start: 20140214, end: 20140216
  2. LITHIUM [Concomitant]
     Dates: start: 20140215
  3. LOXAPINE [Concomitant]
     Dates: start: 20140215
  4. BENADRYL [Concomitant]
     Dates: start: 20140215

REACTIONS (1)
  - Bipolar disorder [Recovered/Resolved]
